FAERS Safety Report 4377959-4 (Version None)
Quarter: 2004Q2

REPORT INFORMATION
  Report Type: 
  Country: None (occurrence: None)
  Receive Date: 20040609
  Receipt Date: 20040602
  Transmission Date: 20050107
  Serious: Yes (Life-Threatening, Hospitalization)
  Sender: FDA-Public Use
  Company Number: 2004-06-0091

PATIENT
  Age: 60 Year
  Sex: Male
  Weight: 56 kg

DRUGS (6)
  1. REBETOL [Suspect]
     Indication: HEPATITIS C
     Dosage: 600 MG ORAL
     Route: 048
     Dates: start: 20040428
  2. INTRON A [Suspect]
     Indication: HEPATITIS C
     Dosage: 10 MU INTRAMUSCULAR
     Route: 030
     Dates: start: 20040428
  3. DIOVAN [Concomitant]
  4. BUFFERIN [Concomitant]
  5. WARFARIN POTASSIUM [Concomitant]
  6. ISOSORBIDE MONONITRATE [Concomitant]

REACTIONS (1)
  - ANGINA PECTORIS [None]
